FAERS Safety Report 7603032-5 (Version None)
Quarter: 2011Q3

REPORT INFORMATION
  Report Type: 
  Country: None (occurrence: None)
  Receive Date: 20110712
  Receipt Date: 20110712
  Transmission Date: 20111222
  Serious: Yes (Hospitalization)
  Sender: FDA-Public Use
  Company Number: None

PATIENT
  Age: 21 Year
  Sex: Male
  Weight: 91.4 kg

DRUGS (2)
  1. HERBALIFE FORMULA 1 [Suspect]
  2. PROTEIN POWDER HERBALIFE [Concomitant]

REACTIONS (1)
  - NO ADVERSE EVENT [None]
